FAERS Safety Report 24463804 (Version 1)
Quarter: 2024Q4

REPORT INFORMATION
  Report Type: Report from Study
  Country: US (occurrence: US)
  Receive Date: 20241018
  Receipt Date: 20241018
  Transmission Date: 20250114
  Serious: No
  Sender: ROCHE
  Company Number: US-ROCHE-3375556

PATIENT
  Age: 64 Year
  Sex: Male

DRUGS (9)
  1. XOLAIR [Suspect]
     Active Substance: OMALIZUMAB
     Indication: Asthma
     Route: 058
  2. XOLAIR [Suspect]
     Active Substance: OMALIZUMAB
     Indication: Chronic obstructive pulmonary disease
  3. XOLAIR [Suspect]
     Active Substance: OMALIZUMAB
     Indication: Lung disorder
  4. XOLAIR [Suspect]
     Active Substance: OMALIZUMAB
     Indication: Emphysema
  5. XOLAIR [Suspect]
     Active Substance: OMALIZUMAB
     Indication: Immunology test abnormal
  6. XOLAIR [Suspect]
     Active Substance: OMALIZUMAB
     Indication: Hypersensitivity pneumonitis
  7. XOLAIR [Suspect]
     Active Substance: OMALIZUMAB
     Indication: Bronchitis chronic
  8. ATORVASTATIN [Concomitant]
     Active Substance: ATORVASTATIN
  9. CHLORHEXIDINE [Concomitant]
     Active Substance: CHLORHEXIDINE

REACTIONS (2)
  - Off label use [Unknown]
  - No adverse event [Unknown]
